FAERS Safety Report 4702471-X (Version None)
Quarter: 2005Q2

REPORT INFORMATION
  Report Type: 
  Country: None (occurrence: None)
  Receive Date: 20050629
  Receipt Date: 20011016
  Transmission Date: 20051028
  Serious: Yes (Hospitalization)
  Sender: FDA-Public Use
  Company Number: 11031804

PATIENT
  Age: 24 Hour
  Sex: Male
  Weight: 3 kg

DRUGS (11)
  1. ZERIT [Suspect]
     Dosage: EXPOSURE DURING GESTATION
     Route: 064
     Dates: end: 20000602
  2. ZERIT [Suspect]
     Indication: PROPHYLAXIS
     Route: 048
     Dates: start: 20000602, end: 20000701
  3. EPIVIR [Suspect]
     Dosage: EXPOSURE DURING GESTATION
     Route: 064
     Dates: end: 20000602
  4. VIRAMUNE [Suspect]
     Dosage: EXPOSURE DURING GESTATION
     Route: 064
     Dates: end: 20000602
  5. RETROVIR [Suspect]
     Dosage: EXPOSURE AT DELIVERY 200 MG/20 ML INFUSION
     Route: 064
     Dates: start: 20000602, end: 20000602
  6. VIRAMUNE [Suspect]
     Indication: PROPHYLAXIS
     Dates: start: 20000603, end: 20000603
  7. TRIFLUCAN [Concomitant]
     Dosage: EXPOSURE DURING GESTATION
     Route: 064
     Dates: end: 20000602
  8. IRON [Concomitant]
     Dosage: EXPOSURE DURING GESTATION
     Route: 064
     Dates: end: 20000602
  9. SPASFON [Concomitant]
     Dosage: EXPOSURE DURING GESTATION
     Route: 064
     Dates: end: 20000602
  10. VITAMINS [Concomitant]
     Dosage: EXPOSURE DURING GESTATION
     Route: 064
     Dates: end: 20000602
  11. ERCEFURYL [Concomitant]
     Dosage: EXPOSURE DURING GESTATION
     Route: 064
     Dates: end: 20000602

REACTIONS (7)
  - ANAEMIA MACROCYTIC [None]
  - BLOOD LACTIC ACID INCREASED [None]
  - CONSTIPATION [None]
  - DRUG EXPOSURE DURING PREGNANCY [None]
  - HYPERTRIGLYCERIDAEMIA [None]
  - NEONATAL DISORDER [None]
  - STOMATITIS [None]
